FAERS Safety Report 7359535-4 (Version None)
Quarter: 2011Q1

REPORT INFORMATION
  Report Type: 
  Country: None (occurrence: None)
  Receive Date: 20110317
  Receipt Date: 20110303
  Transmission Date: 20110831
  Serious: Yes (Life-Threatening, Other)
  Sender: FDA-Public Use
  Company Number: JP-BAYER-2011-011084

PATIENT
  Sex: Male

DRUGS (6)
  1. NU-LOTAN [Concomitant]
     Dosage: DAILY DOSE 25 MG
     Route: 048
  2. TENORMIN [Concomitant]
     Dosage: DAILY DOSE 25 MG
     Route: 048
  3. ACTOS [Concomitant]
     Dosage: DAILY DOSE 30 MG
     Route: 048
  4. LIPITOR [Concomitant]
     Dosage: DAILY DOSE 10 MG
     Route: 048
  5. ASPIRIN [Suspect]
     Indication: ANGINA PECTORIS
     Dosage: DAILY DOSE 100 MG
     Route: 048
     Dates: end: 20100427
  6. ASPENON [Suspect]
     Indication: ANGINA PECTORIS
     Route: 048

REACTIONS (6)
  - HAEMATOCHEZIA [None]
  - SMALL INTESTINAL HAEMORRHAGE [None]
  - INTESTINAL HAEMATOMA [None]
  - LOSS OF CONSCIOUSNESS [None]
  - DIVERTICULUM INTESTINAL [None]
  - MELAENA [None]
